FAERS Safety Report 16233064 (Version 1)
Quarter: 2019Q2

REPORT INFORMATION
  Report Type: Spontaneous
  Country: US (occurrence: US)
  Receive Date: 20190423
  Receipt Date: 20190423
  Transmission Date: 20190711
  Serious: Yes (Other)
  Sender: FDA-Public Use
  Company Number: None

PATIENT
  Age: 36 Year
  Sex: Male

DRUGS (13)
  1. EPIDIOLEX [Suspect]
     Active Substance: CANNABIDIOL
     Indication: SEIZURE
     Route: 048
     Dates: start: 20190415, end: 20190422
  2. LAMOTRIGINE 200MG [Concomitant]
     Active Substance: LAMOTRIGINE
  3. VENTOLIN HFA [Concomitant]
     Active Substance: ALBUTEROL SULFATE
  4. PAXIL 60MG [Concomitant]
  5. BANZEL 400MG [Concomitant]
  6. CLONAZEPAM 1MG [Concomitant]
     Active Substance: CLONAZEPAM
  7. VIMPAT 300MG [Concomitant]
  8. MONTELUKAST [Concomitant]
     Active Substance: MONTELUKAST SODIUM
  9. ASTELIN 137MCG NASAL SPRAY [Concomitant]
  10. BUSPIRONE 10MG [Concomitant]
  11. LEVOTHYROXINE 0.2MG [Concomitant]
  12. ONFI 20MG [Concomitant]
  13. LEVETIRACETAM 500MG [Concomitant]
     Active Substance: LEVETIRACETAM

REACTIONS (6)
  - Nausea [None]
  - Asthenia [None]
  - Agitation [None]
  - Gait inability [None]
  - Infrequent bowel movements [None]
  - Vomiting [None]

NARRATIVE: CASE EVENT DATE: 20190419
